FAERS Safety Report 17431828 (Version 1)
Quarter: 2020Q1

REPORT INFORMATION
  Report Type: Spontaneous
  Country: US (occurrence: US)
  Receive Date: 20200218
  Receipt Date: 20200218
  Transmission Date: 20200409
  Serious: No
  Sender: FDA-Public Use
  Company Number: US-ENDO PHARMACEUTICALS INC-2019-102212

PATIENT
  Sex: Male

DRUGS (1)
  1. CABERGOLINE. [Suspect]
     Active Substance: CABERGOLINE
     Indication: HYPERPROLACTINAEMIA
     Dosage: 0.5 MG. (HALF OF PILL TWICE A WEEK)
     Route: 065

REACTIONS (6)
  - Product dose omission [Unknown]
  - Somnolence [Not Recovered/Not Resolved]
  - Tension [Not Recovered/Not Resolved]
  - Therapeutic response changed [Not Recovered/Not Resolved]
  - Drug effect faster than expected [Not Recovered/Not Resolved]
  - Drug half-life reduced [Not Recovered/Not Resolved]

NARRATIVE: CASE EVENT DATE: 20181216
